FAERS Safety Report 6608073-2 (Version None)
Quarter: 2010Q1

REPORT INFORMATION
  Report Type: 
  Country: None (occurrence: None)
  Receive Date: 20100301
  Receipt Date: 20100222
  Transmission Date: 20100710
  Serious: Yes (Death)
  Sender: FDA-Public Use
  Company Number: CHPA2010US03809

PATIENT
  Age: 40 Year
  Sex: Female

DRUGS (7)
  1. DIPHENHYDRAMINE (NCH) [Suspect]
  2. OXYCODONE [Suspect]
  3. BENZODIAZEPINES [Suspect]
  4. CARISOPRODOL [Suspect]
  5. PROMETHAZINE [Suspect]
  6. DOCUSATE [Suspect]
  7. GABITRIL [Suspect]

REACTIONS (1)
  - DEATH [None]
